FAERS Safety Report 8212731-6 (Version None)
Quarter: 2012Q1

REPORT INFORMATION
  Report Type: 
  Country: None (occurrence: None)
  Receive Date: 20120315
  Receipt Date: 20120306
  Transmission Date: 20120608
  Serious: No
  Sender: FDA-Public Use
  Company Number: JP-MERCK-1202USA03445

PATIENT
  Age: 55 Year
  Sex: Male
  Weight: 81 kg

DRUGS (9)
  1. VASOTEC [Concomitant]
     Indication: DIABETIC NEPHROPATHY
     Route: 048
     Dates: start: 20100304
  2. VASOTEC [Concomitant]
     Indication: HYPERTONIA
     Route: 048
     Dates: start: 20100304
  3. AMARYL [Concomitant]
     Indication: TYPE 2 DIABETES MELLITUS
     Dosage: DAILY DOSAGE UNKNOWN
     Route: 048
     Dates: start: 20080328
  4. KARIKUROMONE [Concomitant]
     Dosage: DAILY DOSE UNKNOWN
     Route: 065
  5. JANUVIA [Suspect]
     Indication: TYPE 2 DIABETES MELLITUS
     Route: 048
     Dates: start: 20111220, end: 20120213
  6. METFORMIN HCL [Concomitant]
     Indication: TYPE 2 DIABETES MELLITUS
     Route: 048
     Dates: start: 20070303
  7. ADONA [Concomitant]
     Dosage: DAILY DOSAGE UNKNOWN
     Route: 065
  8. RABEPRAZOLE SODIUM [Concomitant]
     Indication: GASTROOESOPHAGEAL REFLUX DISEASE
     Route: 048
     Dates: start: 20110317
  9. GASMOTIN [Concomitant]
     Indication: GASTROOESOPHAGEAL REFLUX DISEASE
     Dosage: DAILY DOSAGE UNKNOWN
     Route: 048
     Dates: start: 20110317

REACTIONS (1)
  - DRUG ERUPTION [None]
